FAERS Safety Report 6245276-3 (Version None)
Quarter: 2009Q2

REPORT INFORMATION
  Report Type: 
  Country: None (occurrence: None)
  Receive Date: 20090625
  Receipt Date: 20090619
  Transmission Date: 20091009
  Serious: Yes (Hospitalization)
  Sender: FDA-Public Use
  Company Number: US-MERCK-0906USA04088

PATIENT
  Age: 35 Year
  Sex: Female

DRUGS (4)
  1. SINGULAIR [Suspect]
     Indication: HYPERSENSITIVITY
     Route: 048
     Dates: start: 20061001, end: 20080625
  2. ZYRTEC [Concomitant]
     Route: 065
  3. FLONASE [Concomitant]
     Route: 065
  4. Z-PAK [Concomitant]
     Route: 065

REACTIONS (4)
  - HENOCH-SCHONLEIN PURPURA [None]
  - INFECTION [None]
  - RASH [None]
  - URTICARIA [None]
